FAERS Safety Report 25279376 (Version 1)
Quarter: 2025Q2

REPORT INFORMATION
  Report Type: Spontaneous
  Country: US (occurrence: US)
  Receive Date: 20250507
  Receipt Date: 20250507
  Transmission Date: 20250716
  Serious: Yes (Other)
  Sender: GALPHARM INTERNATIONAL
  Company Number: US-PERRIGO-25US005737

PATIENT
  Sex: Female

DRUGS (1)
  1. OPILL [Suspect]
     Active Substance: NORGESTREL
     Indication: Product used for unknown indication
     Route: 048

REACTIONS (7)
  - Blood loss anaemia [Recovered/Resolved]
  - Mood altered [Recovered/Resolved]
  - Discomfort [Recovered/Resolved]
  - Depressed mood [Recovered/Resolved]
  - Crying [Recovered/Resolved]
  - Polymenorrhoea [Recovered/Resolved]
  - Fatigue [Recovered/Resolved]
